FAERS Safety Report 18846362 (Version 1)
Quarter: 2021Q1

REPORT INFORMATION
  Report Type: Spontaneous
  Country: US (occurrence: US)
  Receive Date: 20210204
  Receipt Date: 20210204
  Transmission Date: 20210419
  Serious: No
  Sender: FDA-Public Use
  Company Number: None

PATIENT
  Age: 63 Year
  Sex: Male
  Weight: 220.5 kg

DRUGS (19)
  1. LETROZOLE. [Suspect]
     Active Substance: LETROZOLE
     Indication: BREAST CANCER
     Route: 048
     Dates: start: 20200228
  2. IPRATROPIUM?ALBUTEROL 0.5?2.5MG/3ML [Concomitant]
  3. FLONASE 50MCG/ACT [Concomitant]
  4. LOSARTAN 100MG [Concomitant]
     Active Substance: LOSARTAN
  5. IBRANCE [Suspect]
     Active Substance: PALBOCICLIB
     Indication: BREAST CANCER
     Route: 048
     Dates: start: 20200723
  6. TYLENOL [Concomitant]
     Active Substance: ACETAMINOPHEN
  7. OMEPRAZOLE 20MG [Concomitant]
     Active Substance: OMEPRAZOLE
  8. VITAMIN D 1000U [Concomitant]
  9. HYDROCODONE?ACETAMINOPHEN 10?325MG [Concomitant]
     Active Substance: ACETAMINOPHEN\HYDROCODONE
  10. AMLODIPINE [Concomitant]
     Active Substance: AMLODIPINE BESYLATE
  11. BUSPIRONE [Concomitant]
     Active Substance: BUSPIRONE HYDROCHLORIDE
  12. BENAZEPRIL 40MG [Concomitant]
  13. EXEMESTANE 25MG [Concomitant]
     Active Substance: EXEMESTANE
  14. MELATONIN 5MG [Concomitant]
     Active Substance: MELATONIN
  15. MOBIC [Concomitant]
     Active Substance: MELOXICAM
  16. GLIMEPIRIDE 2MG [Concomitant]
     Active Substance: GLIMEPIRIDE
  17. MONTELUKAST [Concomitant]
     Active Substance: MONTELUKAST SODIUM
  18. SIMVASTATIN 20MG [Concomitant]
     Active Substance: SIMVASTATIN
  19. METFORMIN 500MG [Concomitant]
     Active Substance: METFORMIN HYDROCHLORIDE

REACTIONS (2)
  - Red blood cell count decreased [None]
  - White blood cell count decreased [None]

NARRATIVE: CASE EVENT DATE: 20210204
